FAERS Safety Report 8785167 (Version 1)
Quarter: 2012Q4

REPORT INFORMATION
  Report Type: 
  Country: BE (occurrence: BE)
  Receive Date: 20120914
  Receipt Date: 20120914
  Transmission Date: 20130627
  Serious: Yes (Other)
  Sender: FDA-Public Use
  Company Number: BE-ELI_LILLY_AND_COMPANY-BE201209002422

PATIENT
  Age: 75 Year
  Sex: Female

DRUGS (2)
  1. ZYPREXA [Suspect]
     Dosage: 2.5 mg, qd
     Dates: start: 2010
  2. NARDELZINE [Concomitant]
     Dosage: 30 mg, qd
     Dates: start: 1997

REACTIONS (7)
  - Addison^s disease [Unknown]
  - Abdominal pain upper [Unknown]
  - Blood corticotrophin decreased [Unknown]
  - Blood cortisol decreased [Unknown]
  - Dehydroepiandrosterone decreased [Unknown]
  - Fatigue [Unknown]
  - Asthenia [Unknown]
